FAERS Safety Report 11006603 (Version 1)
Quarter: 2015Q2

REPORT INFORMATION
  Report Type: Spontaneous
  Country: US (occurrence: US)
  Receive Date: 20150409
  Receipt Date: 20150409
  Transmission Date: 20150821
  Serious: No
  Sender: FDA-Public Use
  Company Number: US-ALLERGAN-1412380US

PATIENT
  Sex: Female

DRUGS (4)
  1. LATISSE [Suspect]
     Active Substance: BIMATOPROST
     Indication: GROWTH OF EYELASHES
     Dosage: UNK
     Dates: start: 201403
  2. LATISSE [Suspect]
     Active Substance: BIMATOPROST
     Indication: INTRAOCULAR PRESSURE INCREASED
  3. SYNTHROID [Concomitant]
     Active Substance: LEVOTHYROXINE SODIUM
     Dosage: UNK
  4. CHOLESTYRAMINE. [Concomitant]
     Active Substance: CHOLESTYRAMINE
     Indication: IRRITABLE BOWEL SYNDROME
     Dosage: UNK

REACTIONS (7)
  - Eyelids pruritus [Unknown]
  - Product use issue [Unknown]
  - Intraocular pressure increased [Recovering/Resolving]
  - Off label use [Unknown]
  - Therapeutic response decreased [Unknown]
  - Eye pruritus [Unknown]
  - Ocular hyperaemia [Unknown]
